FAERS Safety Report 10291426 (Version 3)
Quarter: 2014Q3

REPORT INFORMATION
  Report Type: Spontaneous
  Country: DE (occurrence: None)
  Receive Date: 20140708
  Receipt Date: 20140806
  Transmission Date: 20150326
  Serious: Yes (Other)
  Sender: FDA-Public Use
  Company Number: DE-016147

PATIENT
  Age: 81 Year
  Sex: Female

DRUGS (1)
  1. PICOPREP [Suspect]
     Active Substance: CITRIC ACID MONOHYDRATE\MAGNESIUM OXIDE\SODIUM PICOSULFATE
     Indication: BOWEL PREPARATION
     Dates: start: 20140609, end: 20140609

REACTIONS (8)
  - Abdominal pain [None]
  - Nausea [None]
  - Dyspnoea [None]
  - Dizziness [None]
  - Flushing [None]
  - Hypersensitivity [None]
  - Abdominal distension [None]
  - Pruritus [None]

NARRATIVE: CASE EVENT DATE: 20140609
